FAERS Safety Report 6869211-X (Version None)
Quarter: 2010Q3

REPORT INFORMATION
  Report Type: 
  Country: None (occurrence: None)
  Receive Date: 20100722
  Receipt Date: 20080711
  Transmission Date: 20110219
  Serious: No
  Sender: FDA-Public Use
  Company Number: US-PFIZER INC-2008056292

PATIENT
  Sex: Male

DRUGS (3)
  1. CHANTIX [Suspect]
     Indication: SMOKING CESSATION THERAPY
     Dates: start: 20080624
  2. CRESTOR [Concomitant]
  3. DRUG, UNSPECIFIED [Concomitant]

REACTIONS (2)
  - CHEST DISCOMFORT [None]
  - INCORRECT DOSE ADMINISTERED [None]
